FAERS Safety Report 24214285 (Version 4)
Quarter: 2024Q4

REPORT INFORMATION
  Report Type: Spontaneous
  Country: US (occurrence: US)
  Receive Date: 20240815
  Receipt Date: 20241015
  Transmission Date: 20250114
  Serious: Yes (Hospitalization, Other)
  Sender: DAIICHI
  Company Number: US-DSJP-DSU-2024-140655

PATIENT
  Sex: Male

DRUGS (1)
  1. VANFLYTA [Suspect]
     Active Substance: QUIZARTINIB DIHYDROCHLORIDE
     Indication: Acute myeloid leukaemia
     Dosage: 53 MG, QD
     Route: 048
     Dates: start: 202407

REACTIONS (2)
  - Bacterial infection [Recovered/Resolved]
  - Febrile neutropenia [Recovered/Resolved]
